FAERS Safety Report 10042376 (Version 3)
Quarter: 2014Q3

REPORT INFORMATION
  Report Type: Report from Study
  Country: NZ (occurrence: NZ)
  Receive Date: 20140327
  Receipt Date: 20140715
  Transmission Date: 20150326
  Serious: Yes (Hospitalization, Other)
  Sender: FDA-Public Use
  Company Number: PHHY2014NZ036557

PATIENT
  Sex: Female

DRUGS (5)
  1. CLOZARIL [Suspect]
     Active Substance: CLOZAPINE
     Dosage: 500 MG, UNK
     Dates: start: 20051222
  2. CLOZARIL [Suspect]
     Active Substance: CLOZAPINE
     Dosage: 500 MG, DAILY
     Dates: start: 20140316, end: 20140317
  3. CLOZARIL [Suspect]
     Active Substance: CLOZAPINE
     Dosage: 200 MG, DAILY
  4. CLOZARIL [Suspect]
     Active Substance: CLOZAPINE
     Dosage: 150 MG, DAILY
  5. OLANZAPINE. [Suspect]
     Active Substance: OLANZAPINE
     Dosage: UNK

REACTIONS (4)
  - Drug ineffective [Unknown]
  - Psychotic disorder [Unknown]
  - Electrocardiogram QT prolonged [Unknown]
  - Ventricular fibrillation [Recovered/Resolved]
